FAERS Safety Report 9077990 (Version 1)
Quarter: 2013Q1

REPORT INFORMATION
  Report Type: Spontaneous
  Country: US (occurrence: US)
  Receive Date: 20130130
  Receipt Date: 20130130
  Transmission Date: 20140127
  Serious: No
  Sender: FDA-Public Use
  Company Number: US-ABBOTT-12P-163-0959160-00

PATIENT
  Sex: Female
  Weight: 68.1 kg

DRUGS (5)
  1. HUMIRA 40 MG/0.8 ML PEN [Suspect]
     Indication: CROHN^S DISEASE
     Dates: start: 20120620, end: 20120620
  2. HUMIRA 40 MG/0.8 ML PEN [Suspect]
     Dates: start: 20120704, end: 20120704
  3. HUMIRA 40 MG/0.8 ML PEN [Suspect]
     Dates: start: 20120718
  4. IBUPROFEN [Concomitant]
     Indication: PAIN
  5. IBUPROFEN [Concomitant]
     Indication: HEADACHE

REACTIONS (2)
  - Alopecia [Not Recovered/Not Resolved]
  - Alopecia [Unknown]
